FAERS Safety Report 6828633-3 (Version None)
Quarter: 2010Q3

REPORT INFORMATION
  Report Type: 
  Country: None (occurrence: None)
  Receive Date: 20100709
  Receipt Date: 20070216
  Transmission Date: 20110219
  Serious: No
  Sender: FDA-Public Use
  Company Number: US-PFIZER INC-2007013372

PATIENT
  Sex: Female
  Weight: 54.88 kg

DRUGS (3)
  1. CHANTIX [Suspect]
     Indication: SMOKING CESSATION THERAPY
     Dates: start: 20070101
  2. ADVIL LIQUI-GELS [Concomitant]
     Indication: BACK DISORDER
  3. VICODIN [Concomitant]
     Indication: BACK DISORDER

REACTIONS (1)
  - ABNORMAL DREAMS [None]
